FAERS Safety Report 22136901 (Version 1)
Quarter: 2023Q1

REPORT INFORMATION
  Report Type: Report from Study
  Country: IT (occurrence: IT)
  Receive Date: 20230324
  Receipt Date: 20230324
  Transmission Date: 20230418
  Serious: Yes (Other)
  Sender: FDA-Public Use
  Company Number: None

PATIENT
  Age: 48 Year
  Sex: Female

DRUGS (4)
  1. GABAPENTIN [Suspect]
     Active Substance: GABAPENTIN
     Indication: Product used for unknown indication
     Dosage: DOSAGE: 4 UNIT OF MEASURE: GRAMS FREQUENCY OF ADMINISTRATION: TOTAL
     Route: 048
     Dates: start: 20221010, end: 20221010
  2. OLANZAPINE [Suspect]
     Active Substance: OLANZAPINE
     Indication: Product used for unknown indication
     Dosage: DOSAGE: 140 UNIT OF MEASURE: MILLIGRAMS FREQUENCY OF ADMINISTRATION: TOTAL
     Route: 048
     Dates: start: 20221010, end: 20221010
  3. TRAZODONE HYDROCHLORIDE [Suspect]
     Active Substance: TRAZODONE HYDROCHLORIDE
     Indication: Product used for unknown indication
     Dosage: DOSAGE: 2.1 UNIT OF MEASURE: GRAMS FREQUENCY OF ADMINISTRATION: TOTAL
     Route: 048
     Dates: start: 20221010, end: 20221010
  4. OXCARBAZEPINE [Concomitant]
     Active Substance: OXCARBAZEPINE
     Indication: Product used for unknown indication

REACTIONS (1)
  - Sopor [Recovering/Resolving]

NARRATIVE: CASE EVENT DATE: 20221010
